FAERS Safety Report 7449672-8 (Version None)
Quarter: 2011Q1

REPORT INFORMATION
  Report Type: 
  Country: None (occurrence: None)
  Receive Date: 20110302
  Receipt Date: 20101203
  Transmission Date: 20110831
  Serious: No
  Sender: FDA-Public Use
  Company Number: 023161

PATIENT
  Sex: Female
  Weight: 52.5 kg

DRUGS (5)
  1. FOSAMAX [Concomitant]
  2. PENTASA [Concomitant]
  3. CIMZIA [Suspect]
     Indication: CROHN'S DISEASE
     Dosage: 400 MG 1X/MONTH SUBCUTANEOUS
     Route: 058
     Dates: start: 20080801
  4. AZATHIOPRINE [Concomitant]
  5. MULTI-VITAMINS [Concomitant]

REACTIONS (5)
  - INSOMNIA [None]
  - PARAESTHESIA [None]
  - PAIN IN EXTREMITY [None]
  - INCORRECT DRUG ADMINISTRATION RATE [None]
  - FEELING JITTERY [None]
